FAERS Safety Report 5228791-0 (Version None)
Quarter: 2007Q1

REPORT INFORMATION
  Report Type: 
  Country: None (occurrence: None)
  Receive Date: 20070205
  Receipt Date: 20070129
  Transmission Date: 20070707
  Serious: Yes (Disabling)
  Sender: FDA-Public Use
  Company Number: GB-MERCK-0701GBR00206

PATIENT
  Sex: Female

DRUGS (8)
  1. ZOCOR [Suspect]
     Route: 048
  2. FOLIC ACID [Concomitant]
     Route: 065
  3. ALUMINUM HYDROXIDE AND MAGNESIUM TRISILICATE [Concomitant]
     Route: 065
  4. FERROUS SULFATE [Concomitant]
     Route: 065
  5. LACTULOSE [Concomitant]
     Route: 065
  6. OMEPRAZOLE [Concomitant]
     Route: 065
  7. PREDNISOLONE [Concomitant]
     Route: 065
  8. ZINC SULFATE [Concomitant]
     Route: 065

REACTIONS (1)
  - COUGH [None]
